FAERS Safety Report 25017755 (Version 1)
Quarter: 2025Q1

REPORT INFORMATION
  Report Type: Spontaneous
  Country: US (occurrence: None)
  Receive Date: 20250226
  Receipt Date: 20250226
  Transmission Date: 20250408
  Serious: Yes (Other)
  Sender: FDA-CTU
  Company Number: None

PATIENT
  Age: 73 Year
  Sex: Female
  Weight: 49.95 kg

DRUGS (7)
  1. FLUOXETINE HYDROCHLORIDE [Suspect]
     Active Substance: FLUOXETINE HYDROCHLORIDE
     Indication: Anxiety
     Dosage: FREQUENCY : DAILY;?
     Route: 048
     Dates: start: 20241227, end: 20250129
  2. FLUOXETINE HYDROCHLORIDE [Suspect]
     Active Substance: FLUOXETINE HYDROCHLORIDE
  3. ELIQUIS [Concomitant]
     Active Substance: APIXABAN
  4. VITAMINS [Concomitant]
     Active Substance: VITAMINS
  5. CALCIUM [Concomitant]
     Active Substance: CALCIUM
  6. MAGNESIUM [Concomitant]
     Active Substance: MAGNESIUM
  7. PROBIOTICS NOS [Concomitant]
     Active Substance: PROBIOTICS NOS

REACTIONS (4)
  - Paraesthesia [None]
  - Hypophagia [None]
  - Disturbance in attention [None]
  - Atrial fibrillation [None]

NARRATIVE: CASE EVENT DATE: 20250127
